FAERS Safety Report 6202127-0 (Version None)
Quarter: 2009Q2

REPORT INFORMATION
  Report Type: 
  Country: None (occurrence: None)
  Receive Date: 20090520
  Receipt Date: 20090505
  Transmission Date: 20091009
  Serious: Yes (Other)
  Sender: FDA-Public Use
  Company Number: 2009001377

PATIENT

DRUGS (2)
  1. ERLOTINIB (ERLOTINIB) (TABLET) (ERLOTINIB) [Suspect]
     Indication: MALIGNANT GLIOMA
     Dosage: (200 MG,QD), ORAL
     Route: 048
  2. BEVACIZUMAB (INJECTION) [Suspect]
     Dosage: (10 MG/KG,Q2WKS), INTRAVENOUS
     Route: 042

REACTIONS (1)
  - NASAL SEPTUM PERFORATION [None]
